FAERS Safety Report 10066655 (Version 3)
Quarter: 2014Q4

REPORT INFORMATION
  Report Type: Report from Study
  Country: JP (occurrence: JP)
  Receive Date: 20140408
  Receipt Date: 20141024
  Transmission Date: 20150528
  Serious: Yes (Hospitalization, Other)
  Sender: FDA-Public Use
  Company Number: JP-AMGEN-JPNCT2013062079

PATIENT
  Age: 73 Year
  Sex: Female
  Weight: 42 kg

DRUGS (24)
  1. DAIKENTYUTO [Concomitant]
     Active Substance: HERBALS
     Dosage: 15 G, QD
     Route: 048
     Dates: start: 20120215, end: 20130809
  2. NIVADIL [Concomitant]
     Active Substance: NILVADIPINE
     Dosage: 4 MG, QD
     Route: 048
     Dates: end: 20130809
  3. PANTOL                             /00223901/ [Concomitant]
     Dosage: 500 MG, QD
     Route: 042
     Dates: start: 20130809, end: 20130809
  4. ROPION [Concomitant]
     Active Substance: FLURBIPROFEN AXETIL
     Dosage: 50 MG, QD
     Route: 042
     Dates: start: 20130811, end: 20130812
  5. AVASTIN [Concomitant]
     Active Substance: BEVACIZUMAB
     Indication: PRODUCT USED FOR UNKNOWN INDICATION
     Dosage: UNK UNK, UNK
     Route: 065
     Dates: start: 20130108
  6. ZOMETA [Concomitant]
     Active Substance: ZOLEDRONIC ACID
     Dosage: 4 MG, QD
     Route: 042
     Dates: start: 20121228, end: 20130122
  7. CALCICHEW D3 [Concomitant]
     Active Substance: CALCIUM\CHOLECALCIFEROL
     Dosage: 2 DF, QD
     Route: 048
     Dates: start: 20130212, end: 20130809
  8. URSO [Concomitant]
     Active Substance: URSODIOL
     Dosage: 300 MG, QD
     Route: 048
     Dates: end: 20130809
  9. PRIMPERAN [Concomitant]
     Active Substance: METOCLOPRAMIDE HYDROCHLORIDE
     Dosage: 10 MG, QD
     Route: 042
     Dates: start: 20130809, end: 20130809
  10. IRINOTECAN [Concomitant]
     Active Substance: IRINOTECAN
     Indication: PRODUCT USED FOR UNKNOWN INDICATION
     Dosage: UNK UNK, UNK
     Route: 065
     Dates: start: 20130108
  11. ZANTAC [Concomitant]
     Active Substance: RANITIDINE HYDROCHLORIDE
     Dosage: 100 MG, QD
     Route: 042
     Dates: start: 20130810, end: 20130812
  12. DENOSUMAB [Suspect]
     Active Substance: DENOSUMAB
     Indication: METASTASES TO BONE
     Dosage: 120 MG, UNK
     Route: 058
     Dates: start: 20130212
  13. TS-1 [Concomitant]
     Active Substance: GIMERACIL\OTERACIL\TEGAFUR
     Indication: PRODUCT USED FOR UNKNOWN INDICATION
     Dosage: UNK
     Route: 065
     Dates: start: 20130709, end: 20130809
  14. MAGLAX [Concomitant]
     Active Substance: MAGNESIUM OXIDE
     Dosage: 750 MG, QD
     Route: 048
     Dates: start: 20120403, end: 20130809
  15. GASTER [Concomitant]
     Active Substance: FAMOTIDINE
     Dosage: 20 MG, QD
     Route: 042
     Dates: start: 20130809, end: 20130809
  16. TRAMAL [Concomitant]
     Active Substance: TRAMADOL
     Indication: PRODUCT USED FOR UNKNOWN INDICATION
     Dosage: 75 MG, QD
     Route: 048
     Dates: start: 20130110, end: 20130809
  17. BEVACIZUMAB [Concomitant]
     Active Substance: BEVACIZUMAB
     Indication: PRODUCT USED FOR UNKNOWN INDICATION
     Dosage: UNK
     Route: 065
     Dates: start: 20130108
  18. CALONAL [Concomitant]
     Active Substance: ACETAMINOPHEN
     Dosage: 1800 MG, QD
     Route: 048
     Dates: start: 20130312, end: 20130809
  19. METHYLPREDNISOLONE. [Concomitant]
     Active Substance: METHYLPREDNISOLONE
     Dosage: 125 MG, QD
     Route: 042
     Dates: start: 20130809, end: 20130809
  20. LEVOFOLINATE CALCIUM [Concomitant]
     Active Substance: LEUCOVORIN CALCIUM
     Indication: PRODUCT USED FOR UNKNOWN INDICATION
     Dosage: UNK
     Route: 065
     Dates: start: 20130108, end: 20130625
  21. 5-FU [Concomitant]
     Active Substance: FLUOROURACIL
     Indication: PRODUCT USED FOR UNKNOWN INDICATION
     Dosage: UNK
     Route: 065
     Dates: start: 20130108, end: 20130625
  22. NEXIUM [Concomitant]
     Active Substance: ESOMEPRAZOLE MAGNESIUM
     Dosage: 20 MG, QD
     Route: 048
     Dates: end: 20130809
  23. JANUVIA [Concomitant]
     Active Substance: SITAGLIPTIN PHOSPHATE
     Dosage: 100 MG, QD
     Route: 048
     Dates: end: 20130809
  24. NOVOLIN R [Concomitant]
     Active Substance: INSULIN HUMAN
     Dosage: 24 MU, QD
     Route: 042
     Dates: start: 20130810

REACTIONS (6)
  - Hepatic enzyme abnormal [Recovering/Resolving]
  - White blood cell count decreased [Recovering/Resolving]
  - Hypophosphataemia [Unknown]
  - Back pain [Not Recovered/Not Resolved]
  - Subileus [Recovering/Resolving]
  - Blood potassium decreased [Not Recovered/Not Resolved]

NARRATIVE: CASE EVENT DATE: 20130312
